FAERS Safety Report 4564032-5 (Version None)
Quarter: 2005Q1

REPORT INFORMATION
  Report Type: 
  Country: None (occurrence: None)
  Receive Date: 20050128
  Receipt Date: 20040408
  Transmission Date: 20050727
  Serious: No
  Sender: FDA-Public Use
  Company Number: US-BRISTOL-MYERS SQUIBB COMPANY-12555454

PATIENT
  Age: 79 Year
  Sex: Male
  Weight: 88 kg

DRUGS (9)
  1. CEFZIL [Suspect]
     Indication: BRONCHIAL INFECTION
     Dosage: NDC#00087772060
     Route: 048
     Dates: start: 20040407, end: 20040407
  2. HYTRIN [Concomitant]
  3. CELEBREX [Concomitant]
  4. GLUCOSAMINE [Concomitant]
  5. VITAMIN E [Concomitant]
  6. CENTRUM [Concomitant]
  7. FISH OIL [Concomitant]
  8. SALSALATE [Concomitant]
  9. PROSCAR [Concomitant]

REACTIONS (3)
  - DIARRHOEA [None]
  - NAUSEA [None]
  - VOMITING [None]
